FAERS Safety Report 19771778 (Version 1)
Quarter: 2021Q3

REPORT INFORMATION
  Report Type: Spontaneous
  Country: US (occurrence: US)
  Receive Date: 20210901
  Receipt Date: 20210901
  Transmission Date: 20211014
  Serious: No
  Sender: FDA-Public Use
  Company Number: US-BRISTOL-MYERS SQUIBB COMPANY-BMS-2021-085586

PATIENT
  Age: 64 Year
  Sex: Female
  Weight: 53.52 kg

DRUGS (2)
  1. ELIQUIS [Suspect]
     Active Substance: APIXABAN
     Indication: NEOPLASM MALIGNANT
  2. ELIQUIS [Suspect]
     Active Substance: APIXABAN
     Indication: THROMBOSIS
     Dosage: 5 MILLIGRAM, BID
     Route: 065

REACTIONS (3)
  - Product dose omission issue [Unknown]
  - Intentional product use issue [Unknown]
  - Migraine [Unknown]
